FAERS Safety Report 7415121-9 (Version None)
Quarter: 2011Q2

REPORT INFORMATION
  Report Type: 
  Country: None (occurrence: None)
  Receive Date: 20110414
  Receipt Date: 20110331
  Transmission Date: 20111010
  Serious: Yes (Hospitalization, Other)
  Sender: FDA-Public Use
  Company Number: PHHY2011NL23996

PATIENT
  Sex: Female
  Weight: 86 kg

DRUGS (6)
  1. TAVEGIL [Concomitant]
  2. BETA BLOCKING AGENTS [Concomitant]
  3. NORDETTE-28 [Concomitant]
     Indication: CONTRACEPTION
     Dosage: 30 MG, UNK
  4. PERINDOPRIL [Suspect]
     Indication: BLOOD PRESSURE ABNORMAL
     Dosage: 5 MG, UNK
     Route: 048
     Dates: start: 20110126, end: 20110310
  5. METOPROLOL TARTRATE [Concomitant]
     Indication: HYPERTENSION
     Dosage: 10 MG, UNK
  6. RASILEZ [Suspect]

REACTIONS (1)
  - ANGIOEDEMA [None]
